FAERS Safety Report 6350607-X (Version None)
Quarter: 2009Q3

REPORT INFORMATION
  Report Type: 
  Country: None (occurrence: None)
  Receive Date: 20090911
  Receipt Date: 20090622
  Transmission Date: 20100115
  Serious: No
  Sender: FDA-Public Use
  Company Number: US-ABBOTT-07P-163-0366668-00

PATIENT
  Sex: Female
  Weight: 104 kg

DRUGS (6)
  1. HUMIRA [Suspect]
     Indication: RHEUMATOID ARTHRITIS
     Route: 058
     Dates: start: 20070412, end: 20070511
  2. METHOTREXATE [Concomitant]
     Indication: RHEUMATOID ARTHRITIS
  3. FOLIC ACID [Concomitant]
     Indication: DRUG USE FOR UNKNOWN INDICATION
  4. PREDNISONE [Concomitant]
     Indication: RHEUMATOID ARTHRITIS
  5. LITHIUM CARBONATE [Concomitant]
     Indication: BIPOLAR DISORDER
  6. DIOVAN [Concomitant]
     Indication: HYPERTENSION

REACTIONS (6)
  - DRUG INEFFECTIVE [None]
  - HEADACHE [None]
  - INJECTION SITE IRRITATION [None]
  - JOINT SWELLING [None]
  - PAIN [None]
  - WRONG TECHNIQUE IN DRUG USAGE PROCESS [None]
